FAERS Safety Report 9263823 (Version 1)
Quarter: 2013Q2

REPORT INFORMATION
  Report Type: Spontaneous
  Country: KR (occurrence: KR)
  Receive Date: 20130430
  Receipt Date: 20130430
  Transmission Date: 20140414
  Serious: Yes (Other)
  Sender: FDA-Public Use
  Company Number: KR-B.I. PHARMACEUTICALS,INC./RIDGEFIELD-2013-BI-11473YA

PATIENT
  Age: 7 Decade
  Sex: Male

DRUGS (1)
  1. TAMSULOSINA [Suspect]
     Route: 048

REACTIONS (2)
  - Respiratory distress [Not Recovered/Not Resolved]
  - Paraesthesia [Not Recovered/Not Resolved]
